FAERS Safety Report 22604566 (Version 1)
Quarter: 2023Q2

REPORT INFORMATION
  Report Type: Spontaneous
  Country: None (occurrence: FR)
  Receive Date: 20230615
  Receipt Date: 20230615
  Transmission Date: 20230722
  Serious: Yes (Hospitalization, Other)
  Sender: FDA-Public Use
  Company Number: FR-B.Braun Medical Inc.-2142732

PATIENT
  Age: 62 Year
  Sex: Female

DRUGS (6)
  1. ACETAMINOPHEN [Suspect]
     Active Substance: ACETAMINOPHEN
  2. AZITHROMYCIN [Suspect]
     Active Substance: AZITHROMYCIN
  3. AMITRIPTYLINE [Suspect]
     Active Substance: AMITRIPTYLINE
  4. METHYLPREDNISOLONE [Suspect]
     Active Substance: METHYLPREDNISOLONE
  5. TINZAPARIN SODIUM [Suspect]
     Active Substance: TINZAPARIN SODIUM
  6. CEFOTAXIME SODIUM [Suspect]
     Active Substance: CEFOTAXIME SODIUM

REACTIONS (2)
  - Hepatic cytolysis [Not Recovered/Not Resolved]
  - Jaundice [Not Recovered/Not Resolved]
